FAERS Safety Report 23581538 (Version 1)
Quarter: 2024Q1

REPORT INFORMATION
  Report Type: Spontaneous
  Country: CA (occurrence: CA)
  Receive Date: 20240229
  Receipt Date: 20240229
  Transmission Date: 20240409
  Serious: Yes (Hospitalization)
  Sender: FDA-Public Use
  Company Number: CA-PFIZER INC-202400052430

PATIENT
  Age: 69 Year
  Sex: Female

DRUGS (5)
  1. METHOTREXATE SODIUM [Suspect]
     Active Substance: METHOTREXATE SODIUM
     Dosage: UNK
     Dates: end: 202311
  2. PREDNISONE [Concomitant]
     Active Substance: PREDNISONE
     Dosage: 1 DF
  3. RUXIENCE [Concomitant]
     Active Substance: RITUXIMAB-PVVR
     Indication: Granulomatosis with polyangiitis
     Dosage: 600 MG, X 4 WEEKLY INFUSIONS
     Route: 042
     Dates: start: 20220829, end: 20220922
  4. RUXIENCE [Concomitant]
     Active Substance: RITUXIMAB-PVVR
     Dosage: 500 MG FOR 1 DOSE
     Route: 042
     Dates: start: 20230313, end: 20230313
  5. RUXIENCE [Concomitant]
     Active Substance: RITUXIMAB-PVVR
     Dosage: 500 MG X 1 DOSE
     Route: 042
     Dates: start: 20230905

REACTIONS (2)
  - Dyspnoea [Unknown]
  - Hypertension [Unknown]

NARRATIVE: CASE EVENT DATE: 20130101
